FAERS Safety Report 20455208 (Version 1)
Quarter: 2022Q1

REPORT INFORMATION
  Report Type: Spontaneous
  Country: US (occurrence: US)
  Receive Date: 20220210
  Receipt Date: 20220210
  Transmission Date: 20220423
  Serious: No
  Sender: FDA-Public Use
  Company Number: US-PFIZER INC-202200223394

PATIENT
  Age: 40 Year
  Sex: Female
  Weight: 52.16 kg

DRUGS (1)
  1. VARENICLINE TARTRATE [Suspect]
     Active Substance: VARENICLINE TARTRATE
     Indication: Smoking cessation therapy
     Dosage: UNK

REACTIONS (4)
  - Abdominal distension [Unknown]
  - Abdominal pain [Unknown]
  - Hyperphagia [Unknown]
  - Flatulence [Unknown]
